FAERS Safety Report 21258174 (Version 1)
Quarter: 2022Q3

REPORT INFORMATION
  Report Type: Spontaneous
  Country: US (occurrence: None)
  Receive Date: 20220825
  Receipt Date: 20220825
  Transmission Date: 20221027
  Serious: Yes (Other)
  Sender: FDA-Public Use
  Company Number: None

PATIENT
  Sex: Female

DRUGS (5)
  1. ACTEMRA [Suspect]
     Active Substance: TOCILIZUMAB
     Indication: Product used for unknown indication
     Dosage: 162MG/0.9ML SUBCUTANEOUS??INJECT 09 ML (162 MG) UNDER THE SKIN (SUBCUTANEOUS INJECTION) EVERY 7 DAYS
     Route: 058
     Dates: start: 20161228
  2. CALCIUM FOR CHW WOMEN [Concomitant]
  3. FOLIC ACID TAB [Concomitant]
  4. SOOLANTRA CRE [Concomitant]
  5. VITAMIN D3 TAB [Concomitant]

REACTIONS (1)
  - Intentional dose omission [None]
